FAERS Safety Report 9751051 (Version 1)
Quarter: 2013Q4

REPORT INFORMATION
  Report Type: Spontaneous
  Country: US (occurrence: US)
  Receive Date: 20131212
  Receipt Date: 20131212
  Transmission Date: 20140711
  Serious: No
  Sender: FDA-Public Use
  Company Number: US-TEVA-399393USA

PATIENT
  Age: 39 Year
  Sex: Female
  Weight: 83.08 kg

DRUGS (2)
  1. PARAGARD 380A [Suspect]
     Indication: CONTRACEPTION
     Dates: start: 20130305
  2. MULTIVITAMIN [Concomitant]

REACTIONS (2)
  - Metrorrhagia [Not Recovered/Not Resolved]
  - Menorrhagia [Not Recovered/Not Resolved]
